FAERS Safety Report 10456059 (Version 1)
Quarter: 2014Q3

REPORT INFORMATION
  Report Type: Spontaneous
  Country: GB (occurrence: None)
  Receive Date: 20140912
  Receipt Date: 20140912
  Transmission Date: 20150326
  Serious: Yes (Hospitalization)
  Sender: FDA-Public Use
  Company Number: C-14-115

PATIENT
  Age: 80 Year
  Sex: Female

DRUGS (6)
  1. CIPROFLOXACIN. [Suspect]
     Active Substance: CIPROFLOXACIN
     Dosage: DAYS 6-13; (DATES: UNK)
  2. GENTAMICIN [Concomitant]
     Active Substance: GENTAMICIN
  3. OXYCODONE [Suspect]
     Active Substance: OXYCODONE
     Indication: PAIN MANAGEMENT
     Dosage: VARIES, VARIES, ORAL
     Route: 048
  4. FENTANYL. [Concomitant]
     Active Substance: FENTANYL
  5. CEFAZOLIN [Concomitant]
     Active Substance: CEFAZOLIN
  6. VANCOMYCIN [Concomitant]
     Active Substance: VANCOMYCIN

REACTIONS (2)
  - Myoclonus [None]
  - Drug effect decreased [None]
